FAERS Safety Report 4636618-0 (Version None)
Quarter: 2005Q2

REPORT INFORMATION
  Report Type: 
  Country: None (occurrence: None)
  Receive Date: 20050414
  Receipt Date: 20041111
  Transmission Date: 20051028
  Serious: Yes (Hospitalization)
  Sender: FDA-Public Use
  Company Number: ANTE001360

PATIENT
  Age: 50 Year
  Sex: Male

DRUGS (10)
  1. NATALIZUMAB (NATALIZUMAB) [Suspect]
     Indication: RHEUMATOID ARTHRITIS
     Dosage: 300 MG;QW; IV
     Route: 042
     Dates: start: 20041007, end: 20041007
  2. METHOTREXATE [Concomitant]
  3. FOLIC ACID [Concomitant]
  4. METHYLPREDNISOLONE [Concomitant]
  5. CELECOXIB [Concomitant]
  6. SORBIFER DURULES [Concomitant]
  7. RANITIDINE [Concomitant]
  8. CALCIUM GLUCONATE [Concomitant]
  9. ALLOPURINOL [Concomitant]
  10. ERGOCALCIFEROL [Concomitant]

REACTIONS (7)
  - ARTHRITIS BACTERIAL [None]
  - BRONCHOPNEUMONIA [None]
  - HYPERHIDROSIS [None]
  - POLYARTHRITIS [None]
  - SEPSIS [None]
  - STAPHYLOCOCCAL INFECTION [None]
  - TREMOR [None]
